FAERS Safety Report 18710883 (Version 1)
Quarter: 2021Q1

REPORT INFORMATION
  Report Type: Spontaneous
  Country: DE (occurrence: DE)
  Receive Date: 20210107
  Receipt Date: 20210107
  Transmission Date: 20210419
  Serious: Yes (Other)
  Sender: FDA-Public Use
  Company Number: DE-SUN PHARMACEUTICAL INDUSTRIES LTD-2020RR-274429

PATIENT
  Age: 64 Year
  Sex: Female

DRUGS (7)
  1. PEMBROLIZUMAB. [Suspect]
     Active Substance: PEMBROLIZUMAB
     Indication: IMMUNOCHEMOTHERAPY
     Dosage: ONE CYCLE
     Route: 065
  2. TRAMETINIB [Concomitant]
     Active Substance: TRAMETINIB
     Indication: PRODUCT USED FOR UNKNOWN INDICATION
     Dosage: 2 MILLIGRAM, DAILY
     Route: 065
  3. TRAMETINIB [Concomitant]
     Active Substance: TRAMETINIB
     Dosage: 1 MILLIGRAM, DAILY
     Route: 065
  4. CISPLATIN. [Suspect]
     Active Substance: CISPLATIN
     Indication: IMMUNOCHEMOTHERAPY
     Dosage: UNK
     Route: 065
  5. PEMETREXED. [Suspect]
     Active Substance: PEMETREXED
     Indication: IMMUNOCHEMOTHERAPY
     Dosage: UNK
     Route: 065
  6. DOCETAXEL. [Suspect]
     Active Substance: DOCETAXEL
     Indication: IMMUNOCHEMOTHERAPY
     Dosage: TWO CYCLES
     Route: 065
  7. TRAMETINIB [Concomitant]
     Active Substance: TRAMETINIB
     Dosage: 1.5 MILLIGRAM, DAILY
     Route: 065

REACTIONS (4)
  - Nausea [Unknown]
  - Disease progression [Unknown]
  - Fatigue [Unknown]
  - Metastasis [Unknown]
